APPROVED DRUG PRODUCT: TRIAMCINOLONE ACETONIDE
Active Ingredient: TRIAMCINOLONE ACETONIDE
Strength: 0.055MG/SPRAY
Dosage Form/Route: SPRAY, METERED;NASAL
Application: A214615 | Product #001
Applicant: APOTEX INC
Approved: Jan 19, 2023 | RLD: No | RS: No | Type: OTC